FAERS Safety Report 5589730-6 (Version None)
Quarter: 2008Q1

REPORT INFORMATION
  Report Type: 
  Country: None (occurrence: None)
  Receive Date: 20080114
  Receipt Date: 20080110
  Transmission Date: 20080703
  Serious: Yes (Other)
  Sender: FDA-Public Use
  Company Number: B0502525A

PATIENT
  Age: 57 Year
  Sex: Male

DRUGS (2)
  1. AMOXICILLIN + CLAVULANATE POTASSIUM [Suspect]
     Indication: DRUG USE FOR UNKNOWN INDICATION
     Dosage: 2G PER DAY
     Route: 048
     Dates: start: 20071113, end: 20071116
  2. BISOLVON [Suspect]
     Indication: DRUG USE FOR UNKNOWN INDICATION
     Dosage: 8MG PER DAY
     Dates: start: 20071113, end: 20071116

REACTIONS (2)
  - HYPERHIDROSIS [None]
  - SYNCOPE [None]
